FAERS Safety Report 9478057 (Version 2)
Quarter: 2013Q3

REPORT INFORMATION
  Report Type: Report from Study
  Country: HU (occurrence: HU)
  Receive Date: 20130827
  Receipt Date: 20130827
  Transmission Date: 20140515
  Serious: Yes (Hospitalization)
  Sender: FDA-Public Use
  Company Number: PHHO2011HU04298

PATIENT
  Age: 54 Year
  Sex: Female
  Weight: 66 kg

DRUGS (9)
  1. PLACEBO [Suspect]
     Indication: CORONARY ARTERY DISEASE
     Dosage: UNK
     Route: 048
     Dates: start: 20110131
  2. ALISKIREN [Suspect]
     Indication: CORONARY ARTERY DISEASE
     Dosage: 150 MG, UNK
  3. LESCOL XL [Concomitant]
     Indication: HYPERCHOLESTEROLAEMIA
     Dosage: 80 MG, QD
     Route: 048
     Dates: start: 2009
  4. NEBILET [Concomitant]
     Indication: HYPERTENSION
     Dosage: 5 MG, QD
     Route: 048
     Dates: start: 20080112
  5. CLOPIDOGREL BISULFATE [Concomitant]
     Indication: CORONARY ARTERY DISEASE
     Dosage: 150 MG, QD
     Route: 048
     Dates: start: 20110111
  6. ZANTAC [Concomitant]
     Indication: PROPHYLAXIS
     Dosage: 150 MG, QD
     Route: 048
     Dates: start: 1997
  7. ASPIRIN PROTECT [Concomitant]
     Indication: CORONARY ARTERY DISEASE
     Dosage: 100 MG, UNK
     Route: 048
     Dates: start: 200401
  8. ADEXOR [Concomitant]
     Indication: PROPHYLAXIS
     Dosage: 35 MG, BID
     Dates: start: 200002
  9. SP 54 [Concomitant]
     Indication: PERIPHERAL ARTERIAL OCCLUSIVE DISEASE
     Dosage: 150 MG, QD
     Dates: start: 200401

REACTIONS (2)
  - Femoral artery embolism [Recovered/Resolved]
  - Concomitant disease progression [Recovered/Resolved]
